FAERS Safety Report 4303757-3 (Version None)
Quarter: 2004Q1

REPORT INFORMATION
  Report Type: 
  Country: None (occurrence: None)
  Receive Date: 20040223
  Receipt Date: 20040105
  Transmission Date: 20041129
  Serious: Yes (Other)
  Sender: FDA-Public Use
  Company Number: DEU-2003-0000690

PATIENT
  Sex: Male

DRUGS (6)
  1. OXYCODONE HCL [Suspect]
     Indication: PAIN
     Dosage: ORAL
     Route: 048
  2. DURAGESIC [Suspect]
  3. BELOC (METOPROLOL TARTRATE) [Suspect]
  4. FENISTIL (DIMETINDENE MALEATE) [Suspect]
  5. TOLPERISONE HYDROCHLORIDE (TOLPERISONE HYDROCHLORIDE) [Suspect]
  6. CELEBREX [Suspect]

REACTIONS (2)
  - IATROGENIC INJURY [None]
  - PANCREATITIS [None]
